FAERS Safety Report 11801160 (Version 1)
Quarter: 2015Q4

REPORT INFORMATION
  Report Type: Spontaneous
  Country: US (occurrence: US)
  Receive Date: 20151204
  Receipt Date: 20151204
  Transmission Date: 20160305
  Serious: No
  Sender: FDA-Public Use
  Company Number: US-ELI_LILLY_AND_COMPANY-US201511002406

PATIENT
  Age: 74 Year
  Sex: Male

DRUGS (5)
  1. TRAZODONE [Concomitant]
     Active Substance: TRAZODONE HYDROCHLORIDE
  2. AXIRON [Suspect]
     Active Substance: TESTOSTERONE
     Indication: HYPERHIDROSIS
     Dosage: 60 MG, UNKNOWN
     Route: 065
  3. AXIRON [Suspect]
     Active Substance: TESTOSTERONE
     Dosage: 60 MG, UNKNOWN
     Route: 065
  4. PREDNA [Concomitant]
  5. AXIRON [Suspect]
     Active Substance: TESTOSTERONE
     Indication: ASTHENIA
     Dosage: 60 MG, UNKNOWN
     Route: 065
     Dates: start: 2012, end: 201508

REACTIONS (2)
  - Off label use [Unknown]
  - Prostatic specific antigen increased [Recovered/Resolved]

NARRATIVE: CASE EVENT DATE: 201508
